FAERS Safety Report 23322182 (Version 1)
Quarter: 2023Q4

REPORT INFORMATION
  Report Type: Spontaneous
  Country: DK (occurrence: DK)
  Receive Date: 20231220
  Receipt Date: 20231220
  Transmission Date: 20240109
  Serious: Yes (Other)
  Sender: FDA-Public Use
  Company Number: None

PATIENT
  Age: 74 Year
  Sex: Male

DRUGS (3)
  1. METHOTREXATE [Suspect]
     Active Substance: METHOTREXATE
     Indication: Rheumatoid arthritis
     Dosage: 20 MG, WEEKLY
     Route: 048
     Dates: start: 2008
  2. NITROLINGUAL [Concomitant]
     Active Substance: NITROGLYCERIN
  3. MOMETASONFUROAT ABZ [Concomitant]

REACTIONS (1)
  - Cerebral amyloid angiopathy [Not Recovered/Not Resolved]

NARRATIVE: CASE EVENT DATE: 20230801
